FAERS Safety Report 16075036 (Version 1)
Quarter: 2019Q1

REPORT INFORMATION
  Report Type: Spontaneous
  Country: GB (occurrence: GB)
  Receive Date: 20190315
  Receipt Date: 20190315
  Transmission Date: 20190418
  Serious: Yes (Other)
  Sender: FDA-Public Use
  Company Number: GB-MICRO LABS LIMITED-ML2019-00544

PATIENT
  Age: 39 Year

DRUGS (10)
  1. AMOXICILLIN/CLAVULANIC ACID [Suspect]
     Active Substance: AMOXICILLIN\CLAVULANIC ACID
     Indication: TUBERCULOSIS
     Dates: start: 20181228
  2. BEDAQUILINE [Suspect]
     Active Substance: BEDAQUILINE
     Indication: TUBERCULOSIS
     Dates: start: 20181228
  3. TENOFOVIR [Suspect]
     Active Substance: TENOFOVIR
     Dates: start: 20181117
  4. CYCLOSERINE. [Suspect]
     Active Substance: CYCLOSERINE
     Dosage: 500MG MORNING AND 250MG NIGHT
     Dates: start: 20181228
  5. LINEZOLID. [Suspect]
     Active Substance: LINEZOLID
     Dates: start: 20181123
  6. PYRAZINAMIDE. [Suspect]
     Active Substance: PYRAZINAMIDE
     Dates: start: 20181228
  7. MEROPENEM. [Suspect]
     Active Substance: MEROPENEM
     Indication: ANTIBIOTIC THERAPY
     Dates: start: 20181228
  8. MIRTAZAPINE. [Concomitant]
     Active Substance: MIRTAZAPINE
     Dosage: NIGHT
     Dates: start: 20190117
  9. CLOFAZIMINE [Suspect]
     Active Substance: CLOFAZIMINE
     Dates: start: 20181228
  10. AMIKACIN. [Concomitant]
     Active Substance: AMIKACIN
     Indication: TUBERCULOSIS
     Dosage: 500MG/2ML
     Dates: start: 20181228

REACTIONS (1)
  - Drug reaction with eosinophilia and systemic symptoms [Not Recovered/Not Resolved]

NARRATIVE: CASE EVENT DATE: 20190204
